FAERS Safety Report 8795454 (Version 2)
Quarter: 2012Q4

REPORT INFORMATION
  Report Type: 
  Country: US (occurrence: US)
  Receive Date: 20120917
  Receipt Date: 20120925
  Transmission Date: 20130627
  Serious: Yes (Hospitalization, Other)
  Sender: FDA-Public Use
  Company Number: US-ALEXION PHARMACEUTICALS INC.-A201201677

PATIENT
  Age: 37 None
  Sex: Female

DRUGS (28)
  1. SOLIRIS 300MG [Suspect]
     Indication: ANTIPHOSPHOLIPID SYNDROME
     Dosage: 1200 mg, q2w
     Route: 042
     Dates: start: 201108
  2. SOLIRIS 300MG [Suspect]
     Indication: OFF LABEL USE
     Dosage: 1200 mg, qw
     Route: 042
     Dates: start: 201107, end: 201108
  3. WARFARIN SODIUM [Suspect]
     Dosage: 5 mg, qd bedtime
     Route: 048
     Dates: start: 20120811
  4. WARFARIN SODIUM [Suspect]
     Dosage: 3 mg, single
     Route: 048
     Dates: start: 20120811
  5. POTASSIUM CHLORIDE [Concomitant]
     Dosage: 20 mEq, bid
     Route: 048
     Dates: start: 20120813
  6. POTASSIUM CHLORIDE [Concomitant]
     Dosage: 60 mEq, single
     Route: 048
     Dates: start: 20120812, end: 20120812
  7. AZITHROMYCIN [Concomitant]
     Dosage: 500 mg, qd
     Route: 042
     Dates: start: 20120812, end: 20120817
  8. AZITHROMYCIN [Concomitant]
     Dosage: 500 mg, single
     Route: 042
     Dates: start: 20120811, end: 20120811
  9. SODIUM CHLORIDE [Concomitant]
     Dosage: 250 mg, qd
     Route: 042
     Dates: start: 20120812, end: 20120817
  10. CEFTRIAXONE SODIUM [Concomitant]
     Dosage: 1 g, qd
     Route: 042
     Dates: start: 20120812, end: 20120819
  11. CEFTRIAXONE SODIUM [Concomitant]
     Dosage: 2 g, qd
     Route: 042
     Dates: start: 20120811, end: 20120818
  12. CEFTRIAXONE SODIUM [Concomitant]
     Dosage: 1 g, qd
     Route: 042
     Dates: start: 20120811, end: 20120818
  13. PANTOPRAZOLE SODIUM [Concomitant]
     Dosage: 40 mg, bid
     Route: 048
     Dates: start: 20120812
  14. PREDNISONE [Concomitant]
     Dosage: 10 mg, qd
     Route: 048
     Dates: start: 20120812
  15. COREG [Concomitant]
     Dosage: 6.25 mg, bid
     Route: 048
     Dates: start: 20120811
  16. SENNA [Concomitant]
     Dosage: 2 DF, bid
     Route: 048
     Dates: start: 20120811
  17. DOCUSATE SODIUM [Concomitant]
     Dosage: 2 DF, bid
     Route: 048
     Dates: start: 20120811
  18. ZOLPIDEM TARTRATE [Concomitant]
     Dosage: 10 mg, qd bedtime
     Route: 048
     Dates: start: 20120811
  19. RENVELA [Concomitant]
     Dosage: 1600 mg as directed
     Route: 048
     Dates: start: 20120811
  20. CLONIDINE HYDROCHLORIDE [Concomitant]
     Dosage: 0.1 mg, prn tid
     Route: 048
     Dates: start: 20120811
  21. VANCOMYCIN HCL [Concomitant]
     Dosage: 500 mg, single
     Route: 042
     Dates: start: 20120811, end: 20120811
  22. VANCOMYCIN HCL [Concomitant]
     Dosage: 250 ml, qd
     Route: 042
     Dates: start: 20120811, end: 20120818
  23. HEPARIN SODIUM [Concomitant]
     Indication: PERITONEAL DIALYSIS
     Dosage: 500 ut, qid
     Route: 033
     Dates: start: 20120811
  24. HEPARIN SODIUM [Concomitant]
     Dosage: 1000 ut, qid
     Route: 033
     Dates: start: 20120811
  25. IMMUNOGLOBULIN [Concomitant]
     Indication: HYPOGAMMAGLOBULINAEMIA
     Dosage: UNK, Qmonth
     Route: 042
  26. FLUTICASONE PROPIONATE [Concomitant]
     Dosage: UNK
  27. LISINOPRIL [Concomitant]
     Dosage: UNK
  28. OMEPRAZOLE [Concomitant]
     Dosage: UNK

REACTIONS (12)
  - Peritonitis bacterial [Unknown]
  - Bacteraemia [Unknown]
  - Peritoneal haemorrhage [Unknown]
  - Pneumonia [Recovered/Resolved]
  - Clostridium difficile infection [Recovered/Resolved]
  - Fall [Recovering/Resolving]
  - Excoriation [Recovering/Resolving]
  - Wound haemorrhage [Recovering/Resolving]
  - Conjunctival haemorrhage [Recovering/Resolving]
  - Thrombocytopenia [Not Recovered/Not Resolved]
  - Urinary tract infection [Unknown]
  - Haematocrit decreased [Unknown]
